FAERS Safety Report 25737687 (Version 1)
Quarter: 2025Q3

REPORT INFORMATION
  Report Type: Spontaneous
  Country: US (occurrence: US)
  Receive Date: 20250828
  Receipt Date: 20250828
  Transmission Date: 20251021
  Serious: No
  Sender: COLLEGIUM PHARMACEUTICAL
  Company Number: US-Ironshore Pharmaceuticals Inc.-IRON20241139

PATIENT
  Age: 34 Year
  Sex: Female

DRUGS (4)
  1. JORNAY PM EXTENDED-RELEASE [Suspect]
     Active Substance: METHYLPHENIDATE HYDROCHLORIDE
     Indication: Attention deficit hyperactivity disorder
     Route: 048
     Dates: start: 202401
  2. JORNAY PM EXTENDED-RELEASE [Suspect]
     Active Substance: METHYLPHENIDATE HYDROCHLORIDE
     Route: 048
     Dates: start: 2024, end: 2024
  3. fast acting methylphenidate [Concomitant]
     Indication: Attention deficit hyperactivity disorder
     Route: 065
     Dates: start: 2024
  4. fast acting methylphenidate [Concomitant]
     Route: 065
     Dates: start: 2024

REACTIONS (2)
  - Product dose omission in error [Unknown]
  - Therapeutic response decreased [Unknown]

NARRATIVE: CASE EVENT DATE: 20240101
